FAERS Safety Report 6347212-8 (Version None)
Quarter: 2009Q3

REPORT INFORMATION
  Report Type: 
  Country: None (occurrence: None)
  Receive Date: 20090910
  Receipt Date: 20090826
  Transmission Date: 20100115
  Serious: Yes (Other)
  Sender: FDA-Public Use
  Company Number: JP-ROCHE-654082

PATIENT
  Sex: Male
  Weight: 66 kg

DRUGS (9)
  1. KYTRIL [Suspect]
     Route: 042
     Dates: start: 20081029, end: 20081112
  2. AVASTIN [Suspect]
     Indication: RECTAL CANCER METASTATIC
     Route: 042
     Dates: start: 20080801, end: 20081009
  3. AVASTIN [Suspect]
     Route: 042
     Dates: start: 20081029, end: 20081112
  4. DEXART [Suspect]
     Indication: DRUG USE FOR UNKNOWN INDICATION
     Route: 042
     Dates: start: 20081029, end: 20081112
  5. LEVOFOLINATE [Suspect]
     Indication: RECTAL CANCER METASTATIC
     Route: 042
     Dates: start: 20081029, end: 20081112
  6. FLUOROURACIL [Suspect]
     Indication: RECTAL CANCER METASTATIC
     Route: 042
     Dates: start: 20081029, end: 20081101
  7. TS-1 [Concomitant]
     Route: 048
     Dates: start: 20080801, end: 20081009
  8. AMLODIPINE [Concomitant]
     Route: 048
  9. DIOVAN [Concomitant]
     Route: 048

REACTIONS (1)
  - RENAL IMPAIRMENT [None]
